FAERS Safety Report 14577749 (Version 1)
Quarter: 2018Q1

REPORT INFORMATION
  Report Type: Spontaneous
  Country: US (occurrence: US)
  Receive Date: 20180226
  Receipt Date: 20180226
  Transmission Date: 20180509
  Serious: Yes (Death)
  Sender: FDA-Public Use
  Company Number: None

PATIENT
  Age: 19 Year
  Sex: Male
  Weight: 72 kg

DRUGS (4)
  1. KRATOM POWDER [Suspect]
     Active Substance: MITRAGYNINE\HERBALS
     Indication: DRUG WITHDRAWAL MAINTENANCE THERAPY
     Route: 048
     Dates: start: 20160615, end: 20180205
  2. VAPING (ELECTRONIC CIGARETTES) [Concomitant]
  3. KRATOM POWDER [Suspect]
     Active Substance: MITRAGYNINE\HERBALS
     Indication: DRUG WITHDRAWAL MAINTENANCE THERAPY
     Route: 048
     Dates: start: 20160615, end: 20180205
  4. PROZAC [Concomitant]
     Active Substance: FLUOXETINE HYDROCHLORIDE

REACTIONS (2)
  - Toxicity to various agents [None]
  - Toxicologic test abnormal [None]

NARRATIVE: CASE EVENT DATE: 20180205
